FAERS Safety Report 9129202 (Version 1)
Quarter: 2013Q1

REPORT INFORMATION
  Report Type: Spontaneous
  Country: US (occurrence: US)
  Receive Date: 20130228
  Receipt Date: 20130228
  Transmission Date: 20140127
  Serious: Yes (Hospitalization)
  Sender: FDA-Public Use
  Company Number: US-BAYER-2013-023046

PATIENT
  Age: 46 Year
  Sex: Female

DRUGS (12)
  1. YASMIN [Suspect]
  2. PROTONIX [Concomitant]
     Indication: GASTRIC ULCER
     Dosage: 40 MG, UNK
  3. CELEBREX [Concomitant]
     Indication: ARTHRALGIA
  4. ULTRAM [Concomitant]
  5. NORCO [Concomitant]
  6. TIZANIDINE [Concomitant]
     Dosage: 4 MG, UNK
     Dates: start: 20070805
  7. SKELAXIN [Concomitant]
     Dosage: 800 MG, UNK
     Dates: start: 20070807
  8. PARACETAMOL W/TRAMADOL [Concomitant]
     Dosage: 37.5/325MG
     Dates: start: 20070828
  9. DIAZEPAM [Concomitant]
     Dosage: 5 MG, UNK
     Dates: start: 20070831
  10. HYDROCODONE W/ACETAMINOPHEN [Concomitant]
     Dosage: 5-325MG
     Dates: start: 20070919
  11. VALIUM [Concomitant]
  12. ALEVE [Concomitant]
     Indication: PAIN

REACTIONS (2)
  - Cerebrovascular accident [None]
  - Deep vein thrombosis [None]
